FAERS Safety Report 9888359 (Version 2)
Quarter: 2014Q2

REPORT INFORMATION
  Report Type: Spontaneous
  Country: JP (occurrence: JP)
  Receive Date: 20140211
  Receipt Date: 20140606
  Transmission Date: 20141212
  Serious: No
  Sender: FDA-Public Use
  Company Number: JP-SA-2014SA016094

PATIENT
  Age: 70 Year
  Sex: Male

DRUGS (1)
  1. TAXOTERE [Suspect]
     Indication: PNEUMOTHORAX
     Route: 065
     Dates: start: 200803, end: 200811

REACTIONS (1)
  - Lung disorder [Recovering/Resolving]
